FAERS Safety Report 7345726-5 (Version None)
Quarter: 2011Q1

REPORT INFORMATION
  Report Type: 
  Country: None (occurrence: None)
  Receive Date: 20110310
  Receipt Date: 20110308
  Transmission Date: 20110831
  Serious: Yes (Hospitalization)
  Sender: FDA-Public Use
  Company Number: DE-BRISTOL-MYERS SQUIBB COMPANY-15425523

PATIENT
  Age: 67 Year
  Sex: Male
  Weight: 70 kg

DRUGS (5)
  1. VITAMIN B-12 [Concomitant]
     Dates: start: 20101105
  2. PEMETREXED DISODIUM [Suspect]
     Indication: NON-SMALL CELL LUNG CANCER
     Dosage: VIAL,LAST DOSE ON 15NOV10
     Route: 042
     Dates: start: 20101115
  3. DEXAMETHASONE [Concomitant]
     Dates: start: 20101115
  4. CISPLATIN [Suspect]
     Indication: NON-SMALL CELL LUNG CANCER
     Dosage: LAST DOSE ON 15NOV10
     Route: 042
     Dates: start: 20101115
  5. FOLIC ACID [Concomitant]
     Dates: start: 20101105

REACTIONS (1)
  - GASTRITIS EROSIVE [None]
